FAERS Safety Report 10464280 (Version 2)
Quarter: 2014Q4

REPORT INFORMATION
  Report Type: Spontaneous
  Country: IT (occurrence: IT)
  Receive Date: 20140919
  Receipt Date: 20141218
  Transmission Date: 20150528
  Serious: Yes (Hospitalization)
  Sender: FDA-Public Use
  Company Number: IT-SA-2014SA127843

PATIENT
  Age: 88 Year
  Sex: Male

DRUGS (7)
  1. TOLEP [Concomitant]
     Active Substance: OXCARBAZEPINE
  2. LASIX [Concomitant]
     Active Substance: FUROSEMIDE
  3. STILNOX [Suspect]
     Active Substance: ZOLPIDEM TARTRATE
     Indication: INSOMNIA
     Route: 048
     Dates: start: 20140911, end: 20140914
  4. PARIET [Concomitant]
     Active Substance: RABEPRAZOLE SODIUM
  5. CARDIRENE [Concomitant]
     Active Substance: ASPIRIN DL-LYSINE
  6. LANOXIN [Concomitant]
     Active Substance: DIGOXIN
  7. CLEXANE [Concomitant]
     Active Substance: ENOXAPARIN SODIUM

REACTIONS (2)
  - Sopor [Recovered/Resolved]
  - Bradykinesia [Recovered/Resolved]

NARRATIVE: CASE EVENT DATE: 20140912
